FAERS Safety Report 13613248 (Version 1)
Quarter: 2017Q2

REPORT INFORMATION
  Report Type: Spontaneous
  Country: JP (occurrence: JP)
  Receive Date: 20170605
  Receipt Date: 20170605
  Transmission Date: 20170830
  Serious: Yes (Death)
  Sender: FDA-Public Use
  Company Number: JP-PFIZER INC-2017242112

PATIENT
  Age: 62 Year
  Sex: Male

DRUGS (4)
  1. LIDOCAINE. [Concomitant]
     Active Substance: LIDOCAINE
     Dosage: UNK
  2. LYRICA [Suspect]
     Active Substance: PREGABALIN
     Route: 048
  3. TRAMAL [Suspect]
     Active Substance: TRAMADOL
     Indication: CANCER PAIN
     Route: 048
  4. OXIFAST [Concomitant]
     Active Substance: OXYCODONE

REACTIONS (4)
  - Dysphagia [Unknown]
  - Renal cancer [Fatal]
  - Condition aggravated [Unknown]
  - Hypoaesthesia [Unknown]
